FAERS Safety Report 19969271 (Version 1)
Quarter: 2021Q4

REPORT INFORMATION
  Report Type: Spontaneous
  Country: CA (occurrence: CA)
  Receive Date: 20211019
  Receipt Date: 20211019
  Transmission Date: 20220303
  Serious: Yes (Hospitalization)
  Sender: FDA-Public Use
  Company Number: CA-LUPIN PHARMACEUTICALS INC.-2021-19754

PATIENT
  Age: 44 Year
  Sex: Male

DRUGS (8)
  1. FLUCYTOSINE [Suspect]
     Active Substance: FLUCYTOSINE
     Indication: Cryptococcosis
     Dosage: UNK
     Route: 065
  2. AMPHOTERICIN B [Suspect]
     Active Substance: AMPHOTERICIN B
     Indication: Cryptococcosis
     Dosage: UNK
     Route: 065
  3. OCRELIZUMAB [Concomitant]
     Active Substance: OCRELIZUMAB
     Indication: Multiple sclerosis
     Dosage: UNK
     Route: 065
  4. OCRELIZUMAB [Concomitant]
     Active Substance: OCRELIZUMAB
     Indication: Immune thrombocytopenia
  5. AZATHIOPRINE [Concomitant]
     Active Substance: AZATHIOPRINE
     Indication: Multiple sclerosis
     Dosage: UNK
     Route: 065
  6. AZATHIOPRINE [Concomitant]
     Active Substance: AZATHIOPRINE
     Indication: Immune thrombocytopenia
  7. PREDNISONE [Concomitant]
     Active Substance: PREDNISONE
     Indication: Multiple sclerosis
     Dosage: UNK
     Route: 065
  8. PREDNISONE [Concomitant]
     Active Substance: PREDNISONE
     Indication: Immune thrombocytopenia

REACTIONS (1)
  - Drug ineffective [Unknown]
